FAERS Safety Report 16547125 (Version 1)
Quarter: 2019Q3

REPORT INFORMATION
  Report Type: Spontaneous
  Country: US (occurrence: US)
  Receive Date: 20190709
  Receipt Date: 20190709
  Transmission Date: 20191004
  Serious: No
  Sender: FDA-Public Use
  Company Number: US-GALDERMA-US18046584

PATIENT
  Sex: Female

DRUGS (1)
  1. PROACTIV MD ADAPALENE ACNE TREATMENT [Suspect]
     Active Substance: ADAPALENE
     Indication: DARK CIRCLES UNDER EYES
     Dosage: 0.1%
     Route: 061

REACTIONS (2)
  - Product use in unapproved indication [Recovered/Resolved]
  - Drug ineffective for unapproved indication [Recovered/Resolved]
